FAERS Safety Report 13611482 (Version 3)
Quarter: 2017Q3

REPORT INFORMATION
  Report Type: Spontaneous
  Country: HU (occurrence: HU)
  Receive Date: 20170605
  Receipt Date: 20170706
  Transmission Date: 20171127
  Serious: Yes (Hospitalization, Other)
  Sender: FDA-Public Use
  Company Number: HU-PFIZER INC-2016590854

PATIENT
  Age: 59 Year
  Sex: Male

DRUGS (17)
  1. SUTENT [Suspect]
     Active Substance: SUNITINIB MALATE
     Indication: RENAL CELL CARCINOMA
     Dosage: 50 MG, 1X/DAY, 1ST CYCLE, ACCORDING TO 4/2 SCHEMA
     Route: 048
     Dates: start: 20161201, end: 20161228
  2. SUTENT [Suspect]
     Active Substance: SUNITINIB MALATE
     Dosage: 50 MG, 1X/DAY, 2ND CYCLE, ACCORDING TO 4/2 SCHEMA
     Route: 048
     Dates: start: 20170111, end: 20170202
  3. ASA [Concomitant]
     Active Substance: ASPIRIN
     Dosage: 100 MG, DAILY
  4. ATORVASTATIN [Concomitant]
     Active Substance: ATORVASTATIN
     Dosage: 40 MG, DAILY
  5. FRONTIN [Concomitant]
     Active Substance: ALPRAZOLAM
     Dosage: 0.5 MG, IN THE EVENING
  6. MODUXIN MR [Concomitant]
     Active Substance: TRIMETAZIDINE DIHYDROCHLORIDE
     Dosage: 2X1 TBL.
  7. SUTENT [Suspect]
     Active Substance: SUNITINIB MALATE
     Dosage: 50 MG, 1X/DAY, 3RD CYCLE, ACCORDING TO 4/2 SCHEMA
     Route: 048
     Dates: start: 20170222, end: 20170315
  8. INSULATARD /00646002/ [Concomitant]
     Active Substance: INSULIN HUMAN
     Dosage: 30 IU, UNK
  9. THIOGAMMA [Concomitant]
     Active Substance: THIOCTIC ACID
     Dosage: 600 MG, DAILY
  10. COVEREX AS [Concomitant]
     Active Substance: PERINDOPRIL ARGININE
     Indication: HYPERTENSION
     Dosage: 5 MG, DAILY IN THE MORNING
     Route: 048
  11. SUTENT [Suspect]
     Active Substance: SUNITINIB MALATE
     Dosage: 50 MG, 1X/DAY, 4TH CYCLE, ACCORDING TO 4/2 SCHEMA
     Route: 048
     Dates: start: 20170405, end: 20170503
  12. SUTENT [Suspect]
     Active Substance: SUNITINIB MALATE
     Dosage: 50 MG, 1X/DAY, 5TH CYCLE, ACCORDING TO 4/2 SCHEMA
     Route: 048
     Dates: start: 20170517, end: 20170530
  13. CARVEDILOL HEXAL [Concomitant]
     Active Substance: CARVEDILOL
     Dosage: 6.25 MG, 2X
  14. CITALODEP [Concomitant]
     Dosage: 20 MG, DAILY
  15. CARVEDILOL. [Concomitant]
     Active Substance: CARVEDILOL
     Indication: HYPERTENSION
     Dosage: 25 MG, DAILY
     Route: 048
  16. ACTRAPID [Concomitant]
     Active Substance: INSULIN HUMAN
     Dosage: 12-16-12 U
  17. FENOBRAT [Concomitant]
     Dosage: 1 TBL. IN THE EVENING

REACTIONS (6)
  - Blood pressure increased [Recovered/Resolved]
  - Back pain [Recovering/Resolving]
  - Abdominal pain lower [Recovering/Resolving]
  - Diarrhoea [Recovered/Resolved]
  - Somnolence [Recovering/Resolving]
  - Dehydration [Recovering/Resolving]

NARRATIVE: CASE EVENT DATE: 20161206
